FAERS Safety Report 25761508 (Version 1)
Quarter: 2025Q3

REPORT INFORMATION
  Report Type: Spontaneous
  Country: US (occurrence: US)
  Receive Date: 20250904
  Receipt Date: 20250904
  Transmission Date: 20251021
  Serious: No
  Sender: MEDEXUS PHARMA
  Company Number: US-MEDEXUS PHARMA, INC.-2024MED00512

PATIENT
  Age: 51 Year
  Sex: Female
  Weight: 57.606 kg

DRUGS (5)
  1. RASUVO [Suspect]
     Active Substance: METHOTREXATE SODIUM
     Indication: Rheumatoid arthritis
     Dosage: 15 MG, 1X/WEEK, ON FRIDAYS; ON THE LEG
     Dates: start: 202410
  2. PREDNISONE [Concomitant]
     Active Substance: PREDNISONE
  3. NP THYROID [Concomitant]
     Active Substance: LEVOTHYROXINE\LIOTHYRONINE
  4. UNSPECIFIED ASTHMA INHALERS [Concomitant]
  5. DUPIXENT [Concomitant]
     Active Substance: DUPILUMAB
     Dosage: UNK, 2X/MONTH (EVERY 2 WEEKS)

REACTIONS (8)
  - Rheumatoid arthritis [Not Recovered/Not Resolved]
  - Swelling [Not Recovered/Not Resolved]
  - Musculoskeletal stiffness [Not Recovered/Not Resolved]
  - Arthralgia [Not Recovered/Not Resolved]
  - Incorrect dose administered by device [Recovered/Resolved]
  - Device defective [Recovered/Resolved]
  - Device delivery system issue [Recovered/Resolved]
  - Device mechanical issue [Recovered/Resolved]

NARRATIVE: CASE EVENT DATE: 20241201
